FAERS Safety Report 9605058 (Version 1)
Quarter: 2013Q4

REPORT INFORMATION
  Report Type: Spontaneous
  Country: FR (occurrence: FR)
  Receive Date: 20131008
  Receipt Date: 20131008
  Transmission Date: 20140711
  Serious: Yes (Hospitalization, Other)
  Sender: FDA-Public Use
  Company Number: FR-ASTRAZENECA-2013SE73227

PATIENT
  Age: 73 Year
  Sex: Male

DRUGS (9)
  1. CRESTOR [Suspect]
     Route: 048
     Dates: start: 2004, end: 20130827
  2. METFORMIN [Suspect]
     Route: 065
  3. DETENSIEL [Suspect]
     Indication: HYPERTENSION
     Route: 048
     Dates: start: 2004, end: 20130827
  4. PREVISCAN [Suspect]
     Indication: PARACHUTE MITRAL VALVE
     Route: 048
     Dates: start: 2004, end: 20130827
  5. FLUDEX [Suspect]
     Indication: HYPERTENSION
     Route: 048
     Dates: start: 2004, end: 20130827
  6. APROVEL [Suspect]
     Indication: HYPERTENSION
     Route: 048
     Dates: start: 2004, end: 20130827
  7. VELMETIA [Suspect]
     Indication: TYPE 2 DIABETES MELLITUS
     Route: 048
     Dates: start: 201109, end: 20130827
  8. VITAMIN K [Suspect]
     Route: 065
  9. AMAREL [Concomitant]
     Dates: end: 20130824

REACTIONS (3)
  - Overdose [Unknown]
  - Renal failure acute [Unknown]
  - Pancreatitis acute [Recovered/Resolved]
